FAERS Safety Report 25769417 (Version 2)
Quarter: 2025Q3

REPORT INFORMATION
  Report Type: Spontaneous
  Country: GB (occurrence: GB)
  Receive Date: 20250906
  Receipt Date: 20250921
  Transmission Date: 20251020
  Serious: Yes (Death, Life-Threatening, Hospitalization, Other)
  Sender: TEVA
  Company Number: GB-Flamingo-025870

PATIENT
  Age: 77 Year
  Sex: Female

DRUGS (2)
  1. FLUCLOXACILLIN [Suspect]
     Active Substance: FLUCLOXACILLIN
     Indication: Hyperkeratosis
     Route: 065
  2. DOXYCYCLINE [Suspect]
     Active Substance: DOXYCYCLINE
     Indication: Rash pruritic
     Route: 065

REACTIONS (5)
  - SJS-TEN overlap [Fatal]
  - Full blood count decreased [Fatal]
  - Acute kidney injury [Fatal]
  - Hypothermia [Fatal]
  - Pseudomonas infection [Fatal]
